FAERS Safety Report 4959464-7 (Version None)
Quarter: 2006Q1

REPORT INFORMATION
  Report Type: 
  Country: None (occurrence: None)
  Receive Date: 20060331
  Receipt Date: 20051025
  Transmission Date: 20060701
  Serious: Yes (Hospitalization, Disabling, Other)
  Sender: FDA-Public Use
  Company Number: US-MERCK-0510USA09019

PATIENT
  Age: 58 Year
  Sex: Male
  Weight: 71 kg

DRUGS (3)
  1. VIOXX [Suspect]
     Indication: RHEUMATOID ARTHRITIS
     Route: 048
     Dates: end: 20040901
  2. ATENOLOL [Concomitant]
     Route: 065
  3. CELECOXIB [Concomitant]
     Route: 065

REACTIONS (14)
  - ABASIA [None]
  - ANGIOPATHY [None]
  - ARTERIOSCLEROSIS [None]
  - BLOOD TRIGLYCERIDES INCREASED [None]
  - BLUE TOE SYNDROME [None]
  - CARDIAC DISORDER [None]
  - CHEST PAIN [None]
  - DEPRESSION [None]
  - DYSPEPSIA [None]
  - GASTROOESOPHAGEAL REFLUX DISEASE [None]
  - POST-TRAUMATIC STRESS DISORDER [None]
  - RENAL FAILURE [None]
  - RESPIRATORY DISORDER [None]
  - THROMBOSIS [None]
